FAERS Safety Report 13290473 (Version 5)
Quarter: 2018Q3

REPORT INFORMATION
  Report Type: Report from Study
  Country: JP (occurrence: JP)
  Receive Date: 20170302
  Receipt Date: 20180918
  Transmission Date: 20181010
  Serious: Yes (Death, Hospitalization, Other)
  Sender: FDA-Public Use
  Company Number: JP-INCYTE CORPORATION-2015IN005187

PATIENT

DRUGS (8)
  1. JAKAVI [Suspect]
     Active Substance: RUXOLITINIB
     Dosage: 15 MG, BID
     Route: 048
     Dates: start: 20150413, end: 20160215
  2. DAIPHEN [Concomitant]
     Active Substance: SULFAMETHOXAZOLE\TRIMETHOPRIM
     Indication: PRODUCT USED FOR UNKNOWN INDICATION
     Dosage: 1 DF, UNK
     Route: 048
     Dates: start: 20160118
  3. JAKAVI [Suspect]
     Active Substance: RUXOLITINIB
     Indication: PRIMARY MYELOFIBROSIS
     Dosage: 10 MG, BID
     Route: 048
     Dates: start: 20150216, end: 20150412
  4. BAKTAR [Concomitant]
     Active Substance: SULFAMETHOXAZOLE\TRIMETHOPRIM
     Dosage: UNK
     Route: 048
     Dates: end: 20160830
  5. EXJADE [Suspect]
     Active Substance: DEFERASIROX
     Indication: PRIMARY MYELOFIBROSIS
     Dosage: 500 MG, UNK
     Route: 048
     Dates: end: 20130718
  6. RED BLOOD CELLS, LEUCOCYTE DEPLETED [Concomitant]
     Active Substance: HUMAN RED BLOOD CELL
     Indication: PRIMARY MYELOFIBROSIS
     Dosage: 2 IU, UNK
     Route: 065
     Dates: start: 20130710, end: 20160925
  7. JAKAVI [Suspect]
     Active Substance: RUXOLITINIB
     Dosage: 15 MG, BID
     Route: 048
     Dates: start: 20160304, end: 20160715
  8. BAKTAR [Concomitant]
     Active Substance: SULFAMETHOXAZOLE\TRIMETHOPRIM
     Indication: PRODUCT USED FOR UNKNOWN INDICATION
     Dosage: 1 DF, UNK
     Route: 048
     Dates: start: 20111003, end: 20160117

REACTIONS (12)
  - Primary myelofibrosis [Fatal]
  - Back pain [Recovering/Resolving]
  - Spinal compression fracture [Recovering/Resolving]
  - Haemoglobin decreased [Unknown]
  - Hypofibrinogenaemia [Recovered/Resolved]
  - Pneumonia [Recovering/Resolving]
  - Serum ferritin decreased [Unknown]
  - Blood pressure increased [Unknown]
  - Respiratory tract infection [Not Recovered/Not Resolved]
  - Duodenitis [Recovered/Resolved]
  - Fall [Unknown]
  - Leukaemia [Not Recovered/Not Resolved]

NARRATIVE: CASE EVENT DATE: 20150309
